FAERS Safety Report 5120416-8 (Version None)
Quarter: 2006Q4

REPORT INFORMATION
  Report Type: 
  Country: None (occurrence: None)
  Receive Date: 20061004
  Receipt Date: 20060926
  Transmission Date: 20070319
  Serious: Yes (Other)
  Sender: FDA-Public Use
  Company Number: JP-JPN-A200602656

PATIENT
  Age: 62 Year
  Sex: Female

DRUGS (6)
  1. EPIVIR [Suspect]
     Indication: HIV INFECTION
     Route: 048
     Dates: start: 19970321, end: 20060308
  2. ZERIT [Suspect]
     Indication: HIV INFECTION
     Dosage: 30MG TWICE PER DAY
     Route: 048
     Dates: start: 19971105, end: 20060308
  3. NORVIR [Suspect]
     Indication: HIV INFECTION
     Route: 048
     Dates: start: 20010503, end: 20010509
  4. NORVIR [Suspect]
     Route: 048
     Dates: start: 20041118
  5. REYATAZ [Suspect]
     Indication: HIV INFECTION
     Route: 048
     Dates: start: 20040520
  6. TRUVADA [Concomitant]
     Indication: HIV INFECTION
     Route: 048
     Dates: start: 20060309

REACTIONS (6)
  - BLOOD BILIRUBIN INCREASED [None]
  - CATARACT [None]
  - DRY EYE [None]
  - KERATITIS [None]
  - VISION BLURRED [None]
  - XEROPHTHALMIA [None]
